FAERS Safety Report 5334796-1 (Version None)
Quarter: 2007Q2

REPORT INFORMATION
  Report Type: 
  Country: None (occurrence: None)
  Receive Date: 20070525
  Receipt Date: 20070518
  Transmission Date: 20071010
  Serious: Yes (Hospitalization)
  Sender: FDA-Public Use
  Company Number: PHHO2007RU08745

PATIENT
  Age: 69 Year
  Sex: Female
  Weight: 57.8 kg

DRUGS (3)
  1. ACLASTA (ZOLEDRONIC ACID) VS PLACEBO [Suspect]
     Indication: OSTEOPOROSIS POSTMENOPAUSAL
     Dosage: DOUBLE BLIND
     Route: 042
     Dates: start: 20060407
  2. CALCIUM CHLORIDE [Concomitant]
     Indication: OSTEOPOROSIS POSTMENOPAUSAL
  3. VITAMIN D [Concomitant]
     Indication: OSTEOPOROSIS POSTMENOPAUSAL

REACTIONS (6)
  - BRAIN CONTUSION [None]
  - CONCUSSION [None]
  - HAEMATOMA [None]
  - HEAD INJURY [None]
  - HEADACHE [None]
  - VERTIGO [None]
